FAERS Safety Report 13563050 (Version 8)
Quarter: 2021Q1

REPORT INFORMATION
  Report Type: Spontaneous
  Country: US (occurrence: US)
  Receive Date: 20170519
  Receipt Date: 20210213
  Transmission Date: 20210419
  Serious: Yes (Congenital Anomaly, Other)
  Sender: FDA-Public Use
  Company Number: PHEH2017US015019

PATIENT
  Sex: Female

DRUGS (1)
  1. ONDANSETRON HYDROCHLORIDE. [Suspect]
     Active Substance: ONDANSETRON HYDROCHLORIDE
     Indication: FOETAL EXPOSURE DURING PREGNANCY
     Dosage: MOTHER^S DOSE: 08 MG, TID
     Route: 064

REACTIONS (21)
  - Right ventricular hypertension [Unknown]
  - Aorta hypoplasia [Unknown]
  - Cardiac murmur [Unknown]
  - Atrial septal defect [Unknown]
  - Anxiety [Unknown]
  - Cystic lymphangioma [Unknown]
  - Pulmonary oedema neonatal [Not Recovered/Not Resolved]
  - Emphysema [Unknown]
  - Ventricular septal defect [Unknown]
  - Pneumothorax [Unknown]
  - Emotional distress [Unknown]
  - Weight decrease neonatal [Unknown]
  - Tricuspid valve incompetence [Unknown]
  - Atelectasis neonatal [Unknown]
  - Foetal exposure during pregnancy [Unknown]
  - Sinus tachycardia [Unknown]
  - Heart disease congenital [Unknown]
  - Coarctation of the aorta [Unknown]
  - Bicuspid aortic valve [Unknown]
  - Pain [Unknown]
  - Patent ductus arteriosus [Unknown]
